FAERS Safety Report 11860134 (Version 1)
Quarter: 2015Q4

REPORT INFORMATION
  Report Type: Spontaneous
  Country: BR (occurrence: BR)
  Receive Date: 20151221
  Receipt Date: 20151221
  Transmission Date: 20160305
  Serious: Yes (Other)
  Sender: FDA-Public Use
  Company Number: BR-JNJFOC-20151214802

PATIENT
  Sex: Female

DRUGS (1)
  1. REMICADE [Suspect]
     Active Substance: INFLIXIMAB
     Indication: CROHN^S DISEASE
     Route: 042
     Dates: end: 20150807

REACTIONS (7)
  - Dysphagia [Unknown]
  - Neoplasm malignant [Unknown]
  - Swelling [Unknown]
  - Psoriasis [Unknown]
  - Feeling abnormal [Unknown]
  - Aphasia [Unknown]
  - Malaise [Unknown]
